FAERS Safety Report 7833710-4 (Version None)
Quarter: 2011Q4

REPORT INFORMATION
  Report Type: 
  Country: None (occurrence: None)
  Receive Date: 20111024
  Receipt Date: 20111020
  Transmission Date: 20120403
  Serious: Yes (Death)
  Sender: FDA-Public Use
  Company Number: IN-SANOFI-AVENTIS-2011SA069550

PATIENT
  Age: 50 Year
  Sex: Female
  Weight: 38 kg

DRUGS (3)
  1. CARBOPLATIN [Concomitant]
     Route: 041
     Dates: start: 20091118, end: 20091118
  2. ENOXAPARIN SODIUM [Suspect]
     Route: 058
     Dates: start: 20091118, end: 20091122
  3. PACLITAXEL [Concomitant]
     Route: 041
     Dates: start: 20091118, end: 20091118

REACTIONS (1)
  - DEATH [None]
